FAERS Safety Report 25543354 (Version 1)
Quarter: 2025Q3

REPORT INFORMATION
  Report Type: Spontaneous
  Country: EU (occurrence: EU)
  Receive Date: 20250711
  Receipt Date: 20250711
  Transmission Date: 20251020
  Serious: Yes (Other)
  Sender: AUROBINDO
  Company Number: EU-RICHTER-2024-GR-010851

PATIENT
  Age: 49 Year
  Sex: Female

DRUGS (9)
  1. SIMVASTATIN [Interacting]
     Active Substance: SIMVASTATIN
     Indication: Blood cholesterol increased
     Route: 065
     Dates: start: 202202
  2. SIMVASTATIN [Interacting]
     Active Substance: SIMVASTATIN
     Indication: Low density lipoprotein increased
  3. RIBOCICLIB [Interacting]
     Active Substance: RIBOCICLIB
     Indication: Product used for unknown indication
     Route: 065
     Dates: end: 202204
  4. RIBOCICLIB [Interacting]
     Active Substance: RIBOCICLIB
     Dates: start: 202204
  5. RIBOCICLIB [Interacting]
     Active Substance: RIBOCICLIB
     Dates: start: 20211013
  6. RIBOCICLIB [Interacting]
     Active Substance: RIBOCICLIB
     Dates: start: 20211013
  7. LETROZOLE [Concomitant]
     Active Substance: LETROZOLE
     Indication: Product used for unknown indication
     Route: 065
     Dates: start: 20211013
  8. ZOLEDRONIC ACID [Concomitant]
     Active Substance: ZOLEDRONIC ACID
     Indication: Adjuvant therapy
     Route: 065
     Dates: start: 20211013
  9. ZOLEDRONIC ACID [Concomitant]
     Active Substance: ZOLEDRONIC ACID
     Indication: Metastases to bone

REACTIONS (8)
  - Drug level increased [Unknown]
  - Aspartate aminotransferase increased [Recovered/Resolved]
  - Alanine aminotransferase increased [Recovered/Resolved]
  - Contraindicated product administered [Recovered/Resolved]
  - Liver function test increased [Recovered/Resolved]
  - Transaminases increased [Recovered/Resolved]
  - Labelled drug-drug interaction medication error [Recovered/Resolved]
  - Drug interaction [Recovered/Resolved]

NARRATIVE: CASE EVENT DATE: 20220201
